FAERS Safety Report 19845218 (Version 1)
Quarter: 2021Q3

REPORT INFORMATION
  Report Type: Spontaneous
  Country: US (occurrence: US)
  Receive Date: 20210916
  Receipt Date: 20210916
  Transmission Date: 20211014
  Serious: Yes (Hospitalization)
  Sender: FDA-Public Use
  Company Number: None

PATIENT
  Age: 52 Year
  Sex: Female

DRUGS (6)
  1. VITAMIN D [Concomitant]
     Active Substance: VITAMIN D NOS
  2. HUMIRA [Suspect]
     Active Substance: ADALIMUMAB
     Indication: RHEUMATOID ARTHRITIS
     Route: 058
     Dates: start: 20180117
  3. ALBUTEROL. [Concomitant]
     Active Substance: ALBUTEROL
  4. COLESTIPOL [Concomitant]
     Active Substance: COLESTIPOL
  5. CYCLOBENZAPR [Concomitant]
     Active Substance: CYCLOBENZAPRINE
  6. CETIZINE [Concomitant]

REACTIONS (2)
  - Hypertension [None]
  - Therapy interrupted [None]

NARRATIVE: CASE EVENT DATE: 2021
